FAERS Safety Report 8143996-7 (Version None)
Quarter: 2012Q1

REPORT INFORMATION
  Report Type: 
  Country: None (occurrence: None)
  Receive Date: 20120217
  Receipt Date: 20120217
  Transmission Date: 20120608
  Serious: No
  Sender: FDA-Public Use
  Company Number: None

PATIENT
  Sex: Female
  Weight: 58.059 kg

DRUGS (1)
  1. MIRENA [Suspect]
     Indication: MENORRHAGIA
     Route: 015
     Dates: start: 20080801, end: 20110601

REACTIONS (21)
  - INSOMNIA [None]
  - SECRETION DISCHARGE [None]
  - PANIC ATTACK [None]
  - NIGHT SWEATS [None]
  - OVARIAN CYST [None]
  - FATIGUE [None]
  - ALOPECIA [None]
  - CRYING [None]
  - SUICIDAL IDEATION [None]
  - DRY EYE [None]
  - MIGRAINE [None]
  - DRY MOUTH [None]
  - HOT FLUSH [None]
  - NIPPLE PAIN [None]
  - BREAST PAIN [None]
  - PALPITATIONS [None]
  - MUSCLE SPASMS [None]
  - WEIGHT INCREASED [None]
  - BURNING SENSATION [None]
  - DEPRESSION [None]
  - DIZZINESS [None]
